FAERS Safety Report 20042587 (Version 2)
Quarter: 2022Q1

REPORT INFORMATION
  Report Type: Report from Study
  Country: BE (occurrence: BE)
  Receive Date: 20211108
  Receipt Date: 20220330
  Transmission Date: 20220423
  Serious: Yes (Hospitalization, Other)
  Sender: FDA-Public Use
  Company Number: None

PATIENT
  Age: 68 Year
  Sex: Female
  Weight: 80.5 kg

DRUGS (32)
  1. CARBOPLATIN [Suspect]
     Active Substance: CARBOPLATIN
     Indication: Small cell lung cancer extensive stage
     Route: 065
  2. ETOPOSIDE [Suspect]
     Active Substance: ETOPOSIDE
     Indication: Small cell lung cancer extensive stage
     Dosage: 17/SEP/2020
     Route: 065
  3. ATEZOLIZUMAB [Suspect]
     Active Substance: ATEZOLIZUMAB
     Indication: Small cell lung cancer extensive stage
     Dosage: 17/SEP/2020, 07/OCT/2020, 28/OCT/2020, 18/NOV/2020,  09/DEC/2020, 30/DEC/2020, 20/JAN/2021,
     Route: 042
  4. VARIVENOL [Concomitant]
     Dates: start: 2017
  5. WHOLE BLOOD [Concomitant]
     Active Substance: WHOLE BLOOD
     Dates: start: 20201028, end: 20201028
  6. FUROSEMIDE [Concomitant]
     Active Substance: FUROSEMIDE
     Dates: start: 2004
  7. NETUPITANT [Concomitant]
     Active Substance: NETUPITANT
     Dates: start: 20200826, end: 20200826
  8. ACETAMINOPHEN [Concomitant]
     Active Substance: ACETAMINOPHEN
     Dates: start: 20210203
  9. BISOPROLOL [Concomitant]
     Active Substance: BISOPROLOL
     Dates: start: 2004
  10. DEXAMETHASONE [Concomitant]
     Active Substance: DEXAMETHASONE
     Dates: start: 20200826, end: 20200826
  11. COVID-19 VACCINE [Concomitant]
     Dates: start: 20210318, end: 20210318
  12. ATORVASTATIN [Concomitant]
     Active Substance: ATORVASTATIN
     Dates: start: 2000
  13. LEVOTHYROXINE [Concomitant]
     Active Substance: LEVOTHYROXINE
     Dates: start: 2005
  14. PALONOSETRON HYDROCHLORIDE [Concomitant]
     Active Substance: PALONOSETRON HYDROCHLORIDE
     Dates: start: 20200917, end: 20200917
  15. ETOPOSIDE [Concomitant]
     Active Substance: ETOPOSIDE
     Indication: Neoplasm malignant
     Dates: start: 20210804, end: 20210917
  16. LORMETAZEPAM [Concomitant]
     Active Substance: LORMETAZEPAM
     Dates: start: 1992
  17. CARBOPLATIN [Concomitant]
     Active Substance: CARBOPLATIN
     Indication: Neoplasm malignant
     Dates: start: 20210804, end: 20210915
  18. GYNO DAKTARIN [Concomitant]
  19. FOSFOMYCIN TROMETHAMINE [Concomitant]
     Active Substance: FOSFOMYCIN TROMETHAMINE
     Route: 065
     Dates: start: 20200930, end: 20200930
  20. VOLTAREN [Concomitant]
     Active Substance: DICLOFENAC SODIUM
     Dates: start: 202012, end: 202012
  21. INFLUENZA VIRUS VACCINE [Concomitant]
     Active Substance: INFLUENZA VIRUS VACCINE
     Dates: start: 202011
  22. INDACATEROL [Concomitant]
     Active Substance: INDACATEROL
     Dates: start: 20201029, end: 202108
  23. GLYCOPYRROLATE\INDACATEROL MALEATE [Concomitant]
     Active Substance: GLYCOPYRROLATE\INDACATEROL MALEATE
     Dates: start: 202108, end: 202110
  24. MAGNECAPS [Concomitant]
     Dates: start: 20211014
  25. PIPERACILLIN SODIUM\TAZOBACTAM SODIUM [Concomitant]
     Active Substance: PIPERACILLIN SODIUM\TAZOBACTAM SODIUM
     Dates: start: 20211115
  26. ATEZOLIZUMAB [Concomitant]
     Active Substance: ATEZOLIZUMAB
  27. Daflon [Concomitant]
     Dates: start: 20211007
  28. DAFALGAN [Concomitant]
     Active Substance: ACETAMINOPHEN
     Dates: start: 20211017, end: 20211028
  29. DOXORUBICIN [Concomitant]
     Active Substance: DOXORUBICIN
     Dates: start: 20211013, end: 20211103
  30. MAGNESIUM SULFATE [Concomitant]
     Active Substance: MAGNESIUM SULFATE
     Dates: start: 20211103, end: 20211103
  31. VINCRISTINE [Concomitant]
     Active Substance: VINCRISTINE
     Dates: start: 20211013, end: 20211103
  32. CYCLOPHOSPHAMIDE [Concomitant]
     Active Substance: CYCLOPHOSPHAMIDE
     Dates: start: 20211013, end: 20211103

REACTIONS (31)
  - Urinary tract infection [Recovered/Resolved]
  - Nausea [Recovered/Resolved]
  - Myalgia [Recovered/Resolved]
  - Alopecia [Not Recovered/Not Resolved]
  - Dysgeusia [Recovered/Resolved]
  - Contusion [Recovered/Resolved]
  - Decreased appetite [Recovered/Resolved]
  - Hypoacusis [Not Recovered/Not Resolved]
  - Constipation [Not Recovered/Not Resolved]
  - Anaemia [Recovered/Resolved]
  - Tremor [Not Recovered/Not Resolved]
  - Hypomagnesaemia [Recovered/Resolved]
  - Arthralgia [Not Recovered/Not Resolved]
  - Hyperuricaemia [Recovered/Resolved]
  - Blood creatine phosphokinase increased [Recovered/Resolved]
  - Mouth ulceration [Recovered/Resolved]
  - Polyneuropathy [Not Recovered/Not Resolved]
  - Vulvovaginal mycotic infection [Not Recovered/Not Resolved]
  - Asthenia [Not Recovered/Not Resolved]
  - Weight decreased [Recovered/Resolved]
  - Hypotension [Not Recovered/Not Resolved]
  - Rash [Recovered/Resolved]
  - Dyspnoea [Not Recovered/Not Resolved]
  - Thrombocytopenia [Recovered/Resolved]
  - Epistaxis [Recovered/Resolved]
  - Purpura [Not Recovered/Not Resolved]
  - Cystitis [Recovered/Resolved]
  - Platelet count decreased [Not Recovered/Not Resolved]
  - Back pain [Not Recovered/Not Resolved]
  - Febrile neutropenia [Not Recovered/Not Resolved]
  - Pollakiuria [Recovered/Resolved]

NARRATIVE: CASE EVENT DATE: 20200827
